FAERS Safety Report 11163467 (Version 1)
Quarter: 2015Q2

REPORT INFORMATION
  Report Type: Spontaneous
  Country: US (occurrence: US)
  Receive Date: 20150604
  Receipt Date: 20150604
  Transmission Date: 20150821
  Serious: Yes (Hospitalization)
  Sender: FDA-Public Use
  Company Number: US-SA-2014SA149030

PATIENT
  Age: 75 Year
  Sex: Male

DRUGS (13)
  1. LANTUS [Suspect]
     Active Substance: INSULIN GLARGINE
     Route: 065
  2. DEXAMETHASONE. [Concomitant]
     Active Substance: DEXAMETHASONE
  3. HUMALOG [Suspect]
     Active Substance: INSULIN LISPRO
     Route: 065
  4. MOVICOL [Concomitant]
     Active Substance: POLYETHYLENE GLYCOL 3350\POTASSIUM CHLORIDE\SODIUM BICARBONATE\SODIUM CHLORIDE
  5. LENALIDOMIDE [Concomitant]
     Active Substance: LENALIDOMIDE
  6. ZOMETA [Concomitant]
     Active Substance: ZOLEDRONIC ACID
  7. ALL OTHER THERAPEUTIC PRODUCTS [Concomitant]
     Active Substance: UNSPECIFIED INGREDIENT
  8. PARACODIN [Concomitant]
     Active Substance: DIHYDROCODEINE BITARTRATE
  9. TRIAMTERENE. [Concomitant]
     Active Substance: TRIAMTERENE
  10. CALCIUM [Concomitant]
     Active Substance: CALCIUM
  11. METOPROLOL [Concomitant]
     Active Substance: METOPROLOL
  12. PHENPROCOUMON [Concomitant]
     Active Substance: PHENPROCOUMON
  13. NOVODIGAL [Concomitant]
     Active Substance: .BETA.-ACETYLDIGOXIN

REACTIONS (2)
  - Hypoglycaemia [Recovered/Resolved]
  - Overdose [Unknown]

NARRATIVE: CASE EVENT DATE: 20140930
